FAERS Safety Report 7259807-8 (Version None)
Quarter: 2011Q1

REPORT INFORMATION
  Report Type: 
  Country: None (occurrence: None)
  Receive Date: 20110130
  Receipt Date: 20100906
  Transmission Date: 20110831
  Serious: No
  Sender: FDA-Public Use
  Company Number: US-ABBOTT-10P-163-0668940-00

PATIENT
  Age: 45 Year
  Sex: Female

DRUGS (7)
  1. RITALIN [Concomitant]
     Indication: ATTENTION DEFICIT/HYPERACTIVITY DISORDER
  2. PRILOSEC [Concomitant]
     Indication: DYSPEPSIA
  3. VENTOLIN [Concomitant]
     Indication: CHRONIC OBSTRUCTIVE PULMONARY DISEASE
  4. ABILIFY [Concomitant]
     Indication: BIPOLAR DISORDER
  5. HUMIRA [Suspect]
     Indication: PSORIATIC ARTHROPATHY
     Dates: start: 20091201
  6. ZANAFLEX [Concomitant]
     Indication: FIBROMYALGIA
  7. ZOLOFT [Concomitant]
     Indication: DEPRESSION

REACTIONS (2)
  - INJECTION SITE ERYTHEMA [None]
  - INJECTION SITE PRURITUS [None]
